FAERS Safety Report 8138667-7 (Version None)
Quarter: 2012Q1

REPORT INFORMATION
  Report Type: 
  Country: None (occurrence: None)
  Receive Date: 20120213
  Receipt Date: 20120201
  Transmission Date: 20120608
  Serious: Yes (Other)
  Sender: FDA-Public Use
  Company Number: 2012020152

PATIENT
  Age: 57 Year
  Sex: Male

DRUGS (2)
  1. MESALAMINE [Suspect]
     Indication: ENTEROCOLITIS HAEMORRHAGIC
     Dosage: 1 GM (1 GM, 1 IN 1 D), RECTAL
     Route: 054
     Dates: start: 20110101
  2. HUMIRA [Suspect]
     Indication: ANKYLOSING SPONDYLITIS
     Dosage: 2.8571 MG (40 MG, 1 IN 2 WK, SUBCUTANEOUS
     Route: 058

REACTIONS (3)
  - THROMBOCYTOPENIA [None]
  - MYELODYSPLASTIC SYNDROME [None]
  - NEUTROPENIA [None]
